FAERS Safety Report 12418501 (Version 1)
Quarter: 2016Q2

REPORT INFORMATION
  Report Type: Spontaneous
  Country: US (occurrence: US)
  Receive Date: 20160531
  Receipt Date: 20160531
  Transmission Date: 20160815
  Serious: No
  Sender: FDA-Public Use
  Company Number: US-ASTRAZENECA-2016SE55237

PATIENT
  Sex: Female

DRUGS (8)
  1. TAGRISSO [Suspect]
     Active Substance: OSIMERTINIB
     Indication: METASTASES TO LUNG
     Route: 048
  2. LIDOCAINE. [Concomitant]
     Active Substance: LIDOCAINE
     Route: 065
  3. LANSOPRAZOLE. [Concomitant]
     Active Substance: LANSOPRAZOLE
     Route: 065
  4. CLINDAMYCIN PHOSPHATE. [Concomitant]
     Active Substance: CLINDAMYCIN PHOSPHATE
     Route: 065
  5. TRAMADOL. [Concomitant]
     Active Substance: TRAMADOL
     Route: 065
  6. LYRICA [Concomitant]
     Active Substance: PREGABALIN
     Route: 065
  7. VENTOLINHFA [Concomitant]
     Route: 065
  8. GABAPENTIN. [Concomitant]
     Active Substance: GABAPENTIN
     Route: 065

REACTIONS (10)
  - Onychoclasis [Unknown]
  - Ingrowing nail [Unknown]
  - Decreased appetite [Unknown]
  - Nausea [Unknown]
  - Weight decreased [Unknown]
  - Gingival pain [Unknown]
  - Musculoskeletal chest pain [Unknown]
  - Contusion [Unknown]
  - Yellow skin [Unknown]
  - Gastrointestinal pain [Unknown]
